FAERS Safety Report 7197343-8 (Version None)
Quarter: 2010Q4

REPORT INFORMATION
  Report Type: 
  Country: None (occurrence: None)
  Receive Date: 20101227
  Receipt Date: 20101215
  Transmission Date: 20110411
  Serious: Yes (Hospitalization)
  Sender: FDA-Public Use
  Company Number: JP-PFIZER INC-JP-WYE-H17493210

PATIENT
  Age: 17 Year
  Sex: Female

DRUGS (2)
  1. PREMARIN [Suspect]
     Dosage: UNKNOWN
     Route: 048
     Dates: start: 20100801
  2. DYDROGESTERONE [Concomitant]
     Dosage: UNK
     Route: 048
     Dates: start: 20100801

REACTIONS (2)
  - GASTROINTESTINAL ULCER HAEMORRHAGE [None]
  - HAEMATOCHEZIA [None]
